FAERS Safety Report 17574919 (Version 2)
Quarter: 2020Q1

REPORT INFORMATION
  Report Type: Spontaneous
  Country: GB (occurrence: GB)
  Receive Date: 20200324
  Receipt Date: 20200326
  Transmission Date: 20200409
  Serious: Yes (Life-Threatening)
  Sender: FDA-Public Use
  Company Number: GB-TEVA-2020-GB-1206815

PATIENT
  Age: 29 Year
  Sex: Male
  Weight: 155 kg

DRUGS (9)
  1. METHYLPREDNISOLONE. [Suspect]
     Active Substance: METHYLPREDNISOLONE
     Dosage: 40MG/1ML
     Dates: start: 20200217
  2. METHYLPREDNISOLONE ACETATE. [Concomitant]
     Active Substance: METHYLPREDNISOLONE ACETATE
     Dosage: USE AS DIRECTED
     Dates: start: 20200217, end: 20200218
  3. BETNOVATE [Concomitant]
     Active Substance: BETAMETHASONE
     Dosage: APPLY TO THE AFFECTED AREAS TWICE A DAY FOR 7 DAYS
     Dates: start: 20200106
  4. PREGABALIN. [Concomitant]
     Active Substance: PREGABALIN
     Dosage: 2 DF
     Dates: start: 20190426
  5. DERMOL [Concomitant]
     Active Substance: BENZALKONIUM CHLORIDE\CHLORHEXIDINE HYDROCHLORIDE\ISOPROPYL MYRISTATE\PARAFFIN
     Dosage: (USE ONLY IF ANTIMICROBIAL FUNCTION REQUIRED)
     Dates: start: 20190426, end: 20200102
  6. LIDOCAINE. [Suspect]
     Active Substance: LIDOCAINE
     Dosage: 10MG/1ML
     Dates: start: 20200217
  7. CHLORAMPHENICOL [Concomitant]
     Active Substance: CHLORAMPHENICOL
     Dosage: 1 DOSE TO THE INSIDE OF AFFECTED LOWER LID
     Dates: start: 20191210, end: 20191211
  8. SERTRALINE [Concomitant]
     Active Substance: SERTRALINE HYDROCHLORIDE
     Dosage: 1 DF
     Dates: start: 20191112
  9. FLUORESCEIN SODIUM. [Concomitant]
     Active Substance: FLUORESCEIN SODIUM
     Dosage: 1 GTT
     Dates: start: 20191210, end: 20191211

REACTIONS (1)
  - Anaphylactic reaction [Recovered/Resolved]

NARRATIVE: CASE EVENT DATE: 20200217
